FAERS Safety Report 12457151 (Version 1)
Quarter: 2016Q2

REPORT INFORMATION
  Report Type: Spontaneous
  Country: US (occurrence: US)
  Receive Date: 20160610
  Receipt Date: 20160610
  Transmission Date: 20160815
  Serious: No
  Sender: FDA-Public Use
  Company Number: US-ELI_LILLY_AND_COMPANY-US201606000635

PATIENT
  Sex: Female

DRUGS (4)
  1. LANTUS [Concomitant]
     Active Substance: INSULIN GLARGINE
     Indication: PRODUCT USED FOR UNKNOWN INDICATION
     Dosage: 11 TO 13 U, EACH EVENING
     Route: 065
  2. HUMALOG [Suspect]
     Active Substance: INSULIN LISPRO
     Indication: TYPE 1 DIABETES MELLITUS
     Dosage: 4-10 U, QD BEFORE MEALS
     Route: 065
     Dates: start: 201412, end: 201501
  3. HUMALOG [Suspect]
     Active Substance: INSULIN LISPRO
     Indication: TYPE 1 DIABETES MELLITUS
     Dosage: 4-10 U, QD, BEFORE MEALS
     Route: 065
     Dates: start: 201601
  4. HUMALOG [Suspect]
     Active Substance: INSULIN LISPRO
     Dosage: 4-10 U, QD, BEFORE MEALS
     Route: 065

REACTIONS (2)
  - Blood glucose abnormal [Unknown]
  - Incorrect drug administration duration [Unknown]
